FAERS Safety Report 12748631 (Version 2)
Quarter: 2016Q4

REPORT INFORMATION
  Report Type: Spontaneous
  Country: US (occurrence: US)
  Receive Date: 20160915
  Receipt Date: 20161007
  Transmission Date: 20170207
  Serious: Yes (Hospitalization, Other)
  Sender: FDA-Public Use
  Company Number: US-GLAXOSMITHKLINE-US2016134766

PATIENT
  Age: 80 Year
  Sex: Male

DRUGS (13)
  1. ADVAIR DISKUS [Suspect]
     Active Substance: FLUTICASONE PROPIONATE\SALMETEROL XINAFOATE
     Indication: CHRONIC OBSTRUCTIVE PULMONARY DISEASE
     Dosage: 1 PUFF(S), BID
     Dates: start: 2014
  2. ISOSORBIDE. [Concomitant]
     Active Substance: ISOSORBIDE
  3. PROSCAR [Concomitant]
     Active Substance: FINASTERIDE
  4. FERROUS SULFATE. [Concomitant]
     Active Substance: FERROUS SULFATE
  5. ALFUZOSIN [Concomitant]
     Active Substance: ALFUZOSIN
  6. LANTUS [Concomitant]
     Active Substance: INSULIN GLARGINE
  7. NITROGLYCERIN. [Concomitant]
     Active Substance: NITROGLYCERIN
  8. OMEPRAZOLE. [Concomitant]
     Active Substance: OMEPRAZOLE
  9. ASPIRIN. [Concomitant]
     Active Substance: ASPIRIN
  10. FINASTERIDE. [Concomitant]
     Active Substance: FINASTERIDE
  11. GABAPENTIN. [Concomitant]
     Active Substance: GABAPENTIN
  12. LIPITOR [Concomitant]
     Active Substance: ATORVASTATIN CALCIUM
  13. SPIRIVA [Concomitant]
     Active Substance: TIOTROPIUM BROMIDE MONOHYDRATE

REACTIONS (8)
  - Lung operation [Unknown]
  - Radiotherapy to prostate [Recovered/Resolved]
  - Lung neoplasm malignant [Recovering/Resolving]
  - Cardiac arrest [Recovering/Resolving]
  - Syncope [Unknown]
  - Prostate cancer [Recovered/Resolved]
  - Hypotension [Recovering/Resolving]
  - Fall [Recovering/Resolving]

NARRATIVE: CASE EVENT DATE: 201504
